FAERS Safety Report 17598404 (Version 1)
Quarter: 2020Q1

REPORT INFORMATION
  Report Type: Spontaneous
  Country: US (occurrence: US)
  Receive Date: 20200329
  Receipt Date: 20200329
  Transmission Date: 20200409
  Serious: Yes (Life-Threatening, Hospitalization)
  Sender: FDA-Public Use
  Company Number: None

PATIENT
  Age: 18 Year
  Sex: Female
  Weight: 85.5 kg

DRUGS (8)
  1. LEVOTHYROXIN [Concomitant]
     Active Substance: LEVOTHYROXINE
  2. WOMEN^S MULTIVITAMINS [Concomitant]
  3. CLARITIN [Concomitant]
     Active Substance: LORATADINE
  4. MINOCYCLINE [Suspect]
     Active Substance: MINOCYCLINE HYDROCHLORIDE
     Indication: FOLLICULITIS
     Dates: start: 20140520, end: 20140720
  5. COREG [Concomitant]
     Active Substance: CARVEDILOL
  6. YAZ BIRTH CONTROL [Concomitant]
  7. BENADRYL [Concomitant]
     Active Substance: DIPHENHYDRAMINE HYDROCHLORIDE
  8. SPIRONOLACTONE. [Concomitant]
     Active Substance: SPIRONOLACTONE

REACTIONS (3)
  - Cardiac failure congestive [None]
  - Renal failure [None]
  - Drug reaction with eosinophilia and systemic symptoms [None]

NARRATIVE: CASE EVENT DATE: 20140720
